FAERS Safety Report 8541431-8 (Version None)
Quarter: 2012Q3

REPORT INFORMATION
  Report Type: 
  Country: None (occurrence: None)
  Receive Date: 20120716
  Receipt Date: 20120703
  Transmission Date: 20120928
  Serious: Yes (Hospitalization, Disabling, Other)
  Sender: FDA-Public Use
  Company Number: AUR-APL-2012-02928

PATIENT
  Age: 76 Year
  Sex: Male
  Weight: 93 kg

DRUGS (11)
  1. RAMIPRIL [Suspect]
     Indication: HYPERTENSION
     Dosage: ORAL
     Route: 048
     Dates: start: 20110901, end: 20120325
  2. ASACOL [Concomitant]
  3. SIMVASTATIN [Concomitant]
  4. CLOPIDOGREL [Concomitant]
  5. AMLODIPINE [Concomitant]
  6. CIRCARDIN (MELATONIN) [Concomitant]
  7. DOXAZOSIN MESYLATE [Concomitant]
  8. TRAMADOL HCL [Concomitant]
  9. ATENOLOL [Concomitant]
  10. SODIUM BICARBONATE IN PLASTIC CONTAINER [Concomitant]
  11. CO-DYDRAMOL (PARAMOL-118) [Concomitant]

REACTIONS (8)
  - ASTHENIA [None]
  - FALL [None]
  - ORTHOSTATIC HYPOTENSION [None]
  - SYNCOPE [None]
  - ABASIA [None]
  - JOINT RANGE OF MOTION DECREASED [None]
  - DYSSTASIA [None]
  - MALAISE [None]
